FAERS Safety Report 11203092 (Version 1)
Quarter: 2015Q2

REPORT INFORMATION
  Report Type: Report from Study
  Country: BR (occurrence: BR)
  Receive Date: 20150619
  Receipt Date: 20150619
  Transmission Date: 20150821
  Serious: Yes (Other)
  Sender: FDA-Public Use
  Company Number: BR-ABBVIE-15K-020-1409491-00

PATIENT
  Sex: Female

DRUGS (1)
  1. HUMIRA [Suspect]
     Active Substance: ADALIMUMAB
     Indication: RHEUMATOID ARTHRITIS
     Route: 058

REACTIONS (7)
  - Dysgeusia [Unknown]
  - Tooth discolouration [Unknown]
  - Tooth fracture [Unknown]
  - Hyperhidrosis [Unknown]
  - Chills [Unknown]
  - Teeth brittle [Unknown]
  - Tremor [Unknown]
